FAERS Safety Report 18758379 (Version 1)
Quarter: 2021Q1

REPORT INFORMATION
  Report Type: Spontaneous
  Country: CN (occurrence: CN)
  Receive Date: 20210119
  Receipt Date: 20210119
  Transmission Date: 20210419
  Serious: Yes (Life-Threatening, Other)
  Sender: FDA-Public Use
  Company Number: CN-009507513-2101CHN007259

PATIENT
  Age: 77 Year
  Sex: Female
  Weight: 55 kg

DRUGS (2)
  1. SODIUM CHLORIDE. [Concomitant]
     Active Substance: SODIUM CHLORIDE
     Indication: MEDICATION DILUTION
     Dosage: 100 MILLILITER, QD
     Route: 041
     Dates: start: 20201224, end: 20201228
  2. INVANZ [Suspect]
     Active Substance: ERTAPENEM SODIUM
     Indication: PNEUMONIA
     Dosage: 1 GRAM, QD
     Route: 041
     Dates: start: 20201224, end: 20201228

REACTIONS (2)
  - Expired product administered [Unknown]
  - Epilepsy [Recovering/Resolving]

NARRATIVE: CASE EVENT DATE: 20201224
